FAERS Safety Report 5129906-5 (Version None)
Quarter: 2006Q4

REPORT INFORMATION
  Report Type: 
  Country: None (occurrence: None)
  Receive Date: 20061012
  Receipt Date: 20060926
  Transmission Date: 20070319
  Serious: Yes (Death, Life-Threatening, Hospitalization)
  Sender: FDA-Public Use
  Company Number: TRP_0873_2006

PATIENT
  Age: 19 Year
  Sex: Female

DRUGS (3)
  1. AMPHOTERICIN B [Suspect]
     Indication: CANDIDIASIS
     Dosage: 1.5 MG/KG QDAY IV
     Route: 042
  2. AMPHOTERICIN B [Suspect]
     Indication: CANDIDIASIS
     Dosage: 0.7 MG/KG QDAY IV
     Route: 042
  3. AMPHOTERICIN B [Suspect]
     Indication: CANDIDIASIS
     Dosage: 1 MG/KG QDAY IV
     Route: 042

REACTIONS (3)
  - HEPATITIS FULMINANT [None]
  - HYPERTENSION [None]
  - PYREXIA [None]
